FAERS Safety Report 8081370-2 (Version None)
Quarter: 2012Q1

REPORT INFORMATION
  Report Type: 
  Country: None (occurrence: None)
  Receive Date: 20120130
  Receipt Date: 20120125
  Transmission Date: 20120608
  Serious: Yes (Other)
  Sender: FDA-Public Use
  Company Number: US-B.I. PHARMACEUTICALS,INC./RIDGEFIELD-2012-BP-01564BP

PATIENT
  Sex: Male

DRUGS (8)
  1. VICODIN [Concomitant]
     Indication: BACK PAIN
     Dosage: 2225 MG
     Route: 048
     Dates: start: 19980101
  2. PRADAXA [Suspect]
     Indication: ATRIAL FIBRILLATION
     Dosage: 300 MG
     Route: 048
     Dates: start: 20101201
  3. TAMSULOSIN HCL [Concomitant]
     Indication: PROSTATOMEGALY
     Dosage: 8 MG
     Route: 048
  4. HERBS [Concomitant]
     Indication: PROPHYLAXIS
  5. MULTI-VITAMIN [Concomitant]
     Indication: PROPHYLAXIS
     Route: 048
  6. PRILOSEC [Concomitant]
     Indication: GASTROOESOPHAGEAL REFLUX DISEASE
     Dosage: 40 MG
     Route: 048
  7. METOPROLOL TARTRATE [Concomitant]
     Indication: HYPERTENSION
     Dosage: 100 MG
     Route: 048
  8. ASPIRIN [Concomitant]
     Indication: PROPHYLAXIS
     Dosage: 81 MG
     Route: 048

REACTIONS (2)
  - COLONIC POLYP [None]
  - COLON CANCER [None]
